FAERS Safety Report 9263583 (Version 1)
Quarter: 2013Q2

REPORT INFORMATION
  Report Type: Spontaneous
  Country: US (occurrence: US)
  Receive Date: 20130430
  Receipt Date: 20130430
  Transmission Date: 20140414
  Serious: No
  Sender: FDA-Public Use
  Company Number: US-009507513-1303USA014021

PATIENT
  Sex: Female

DRUGS (1)
  1. DR. SCHOLL^S BLISTER DEFENSE ANTI-FRICTION STICK [Suspect]
     Indication: BLISTER
     Dosage: UNK, UNKNOWN
     Route: 061

REACTIONS (1)
  - Therapeutic product ineffective [Unknown]
